FAERS Safety Report 4459350-5 (Version None)
Quarter: 2004Q3

REPORT INFORMATION
  Report Type: 
  Country: None (occurrence: None)
  Receive Date: 20040927
  Receipt Date: 20030605
  Transmission Date: 20050211
  Serious: Yes (Disabling, Other)
  Sender: FDA-Public Use
  Company Number: US-MERCK-0306USA00795

PATIENT
  Age: 70 Year
  Sex: Female
  Weight: 90 kg

DRUGS (14)
  1. TYLENOL [Concomitant]
     Route: 065
  2. DARVOCET-N 100 [Concomitant]
     Route: 065
  3. DULCOLAX [Concomitant]
     Route: 065
  4. OS-CAL D [Concomitant]
     Route: 065
  5. FLEXERIL [Concomitant]
     Route: 065
  6. PREMPRO [Concomitant]
     Route: 065
  7. TRICOR [Concomitant]
     Route: 065
  8. LEVOTHROID [Concomitant]
     Route: 065
  9. NIACIN [Concomitant]
     Route: 065
  10. POTASSIUM (UNSPECIFIED) [Concomitant]
     Route: 048
  11. VIOXX [Suspect]
     Route: 048
  12. VIOXX [Suspect]
     Route: 048
  13. DIOVAN [Concomitant]
     Route: 065
  14. AMBIEN [Concomitant]
     Route: 065

REACTIONS (47)
  - ADVERSE EVENT [None]
  - ANAEMIA [None]
  - ANHEDONIA [None]
  - ARTHRALGIA [None]
  - BACK PAIN [None]
  - CARDIOMEGALY [None]
  - CHEST DISCOMFORT [None]
  - CHEST PAIN [None]
  - CONDITION AGGRAVATED [None]
  - DEEP VEIN THROMBOSIS [None]
  - DEMENTIA [None]
  - DEMENTIA ALZHEIMER'S TYPE [None]
  - DEPRESSION [None]
  - DEPRESSIVE SYMPTOM [None]
  - DERMATITIS [None]
  - DERMATITIS CONTACT [None]
  - DISCOMFORT [None]
  - DYSPNOEA [None]
  - DYSPNOEA EXERTIONAL [None]
  - EXOSTOSIS [None]
  - FATIGUE [None]
  - GASTRIC DISORDER [None]
  - GASTROOESOPHAGEAL REFLUX DISEASE [None]
  - HAEMATOMA [None]
  - HYPERTONIC BLADDER [None]
  - INJURY [None]
  - INSOMNIA [None]
  - INTERMITTENT CLAUDICATION [None]
  - INTERVERTEBRAL DISC DEGENERATION [None]
  - LIVEDO RETICULARIS [None]
  - LUMBAR RADICULOPATHY [None]
  - MYALGIA [None]
  - NERVE COMPRESSION [None]
  - OEDEMA PERIPHERAL [None]
  - OSTEOARTHRITIS [None]
  - OSTEOPOROSIS [None]
  - PROCEDURAL SITE REACTION [None]
  - RASH [None]
  - SCIATICA [None]
  - SEROMA [None]
  - SKIN ULCER [None]
  - SPINAL CLAUDICATION [None]
  - SPINAL COLUMN STENOSIS [None]
  - SPINAL COMPRESSION FRACTURE [None]
  - THROMBOPHLEBITIS SUPERFICIAL [None]
  - VENOUS INSUFFICIENCY [None]
  - VERTIGO POSITIONAL [None]
